FAERS Safety Report 14634814 (Version 1)
Quarter: 2018Q1

REPORT INFORMATION
  Report Type: Spontaneous
  Country: US (occurrence: US)
  Receive Date: 20180313
  Receipt Date: 20180313
  Transmission Date: 20180509
  Serious: No
  Sender: FDA-Public Use
  Company Number: None

PATIENT
  Age: 41 Year
  Sex: Female

DRUGS (1)
  1. CETROTIDE [Suspect]
     Active Substance: CETRORELIX ACETATE
     Indication: INFERTILITY
     Route: 058
     Dates: start: 201801, end: 201801

REACTIONS (1)
  - Dizziness [None]

NARRATIVE: CASE EVENT DATE: 201801
